FAERS Safety Report 8333862-6 (Version None)
Quarter: 2012Q2

REPORT INFORMATION
  Report Type: 
  Country: None (occurrence: None)
  Receive Date: 20120503
  Receipt Date: 20101229
  Transmission Date: 20120825
  Serious: No
  Sender: FDA-Public Use
  Company Number: US-TEVA-2011000015

PATIENT
  Sex: Male
  Weight: 65.83 kg

DRUGS (4)
  1. NUVIGIL [Suspect]
     Indication: FATIGUE
     Dosage: 150 MILLIGRAM;
     Route: 048
     Dates: start: 20100101
  2. MORPHINE SULFATE [Concomitant]
  3. SOMA [Concomitant]
     Dates: start: 20080101
  4. KLONOPIN [Concomitant]

REACTIONS (1)
  - DRUG INEFFECTIVE FOR UNAPPROVED INDICATION [None]
